FAERS Safety Report 19783956 (Version 1)
Quarter: 2021Q3

REPORT INFORMATION
  Report Type: Spontaneous
  Country: US (occurrence: US)
  Receive Date: 20210901
  Receipt Date: 20210901
  Transmission Date: 20211014
  Serious: No
  Sender: FDA-Public Use
  Company Number: None

PATIENT
  Age: 51 Year
  Sex: Female

DRUGS (1)
  1. DIMETHYL FUMARATE DR 120MG MYLAN [Suspect]
     Active Substance: DIMETHYL FUMARATE
     Indication: MULTIPLE SCLEROSIS
     Route: 048
     Dates: start: 202107, end: 202107

REACTIONS (3)
  - Paralysis [None]
  - Dysarthria [None]
  - Asthenopia [None]

NARRATIVE: CASE EVENT DATE: 202107
